FAERS Safety Report 5238685-2 (Version None)
Quarter: 2007Q1

REPORT INFORMATION
  Report Type: 
  Country: None (occurrence: None)
  Receive Date: 20070214
  Receipt Date: 20070214
  Transmission Date: 20070707
  Serious: No
  Sender: FDA-Public Use
  Company Number: None

PATIENT
  Age: 44 Year
  Sex: Female

DRUGS (9)
  1. METHADONE HCL [Suspect]
     Indication: CANCER PAIN
     Dosage: 30 MG = 3 X 10 MG 2 DOSES, 3 HRS APART PO
     Route: 048
     Dates: start: 20070131
  2. METHADONE HCL [Suspect]
     Indication: OVARIAN CANCER
     Dosage: 30 MG = 3 X 10 MG 2 DOSES, 3 HRS APART PO
     Route: 048
     Dates: start: 20070131
  3. MORPHINE SULFATE [Suspect]
  4. CYMBALTA [Suspect]
  5. BENADRYL [Concomitant]
  6. SENOKOT [Concomitant]
  7. TRAZODONE HCL [Suspect]
  8. ATIVAN [Suspect]
  9. AMBIEN [Suspect]

REACTIONS (8)
  - BURNING SENSATION [None]
  - CHEST DISCOMFORT [None]
  - DYSPNOEA [None]
  - ERYTHEMA [None]
  - HEADACHE [None]
  - HYPOAESTHESIA [None]
  - SKIN DISCOLOURATION [None]
  - SPEECH DISORDER [None]
